FAERS Safety Report 9710811 (Version 1)
Quarter: 2013Q4

REPORT INFORMATION
  Report Type: Spontaneous
  Country: US (occurrence: None)
  Receive Date: 20131125
  Receipt Date: 20131125
  Transmission Date: 20140711
  Serious: No
  Sender: FDA-Public Use
  Company Number: None

PATIENT
  Age: 61 Year
  Sex: Female
  Weight: 83.92 kg

DRUGS (1)
  1. NIFEDIPINE ER 90 MG MYLAN [Suspect]
     Indication: HYPERTENSION
     Dosage: 1 TABLET ONCE DAILY TAKEN BY MOUTH
     Route: 048
     Dates: start: 20121101, end: 20131124

REACTIONS (3)
  - Local swelling [None]
  - Local swelling [None]
  - Joint swelling [None]
